FAERS Safety Report 8178746-1 (Version None)
Quarter: 2012Q1

REPORT INFORMATION
  Report Type: 
  Country: None (occurrence: None)
  Receive Date: 20120301
  Receipt Date: 20120301
  Transmission Date: 20120608
  Serious: Yes (Life-Threatening, Hospitalization)
  Sender: FDA-Public Use
  Company Number: None

PATIENT
  Sex: Female

DRUGS (1)
  1. ACTOS [Suspect]
     Indication: TYPE 2 DIABETES MELLITUS
     Dosage: 45MG
     Dates: start: 20030521, end: 20110908

REACTIONS (1)
  - BLADDER CANCER [None]
